FAERS Safety Report 5429679-2 (Version None)
Quarter: 2007Q3

REPORT INFORMATION
  Report Type: 
  Country: None (occurrence: None)
  Receive Date: 20070731
  Receipt Date: 20070502
  Transmission Date: 20080115
  Serious: No
  Sender: FDA-Public Use
  Company Number: US200705000989

PATIENT
  Age: 53 Year
  Sex: Female
  Weight: 99.8 kg

DRUGS (7)
  1. BYETTA [Suspect]
     Indication: TYPE 2 DIABETES MELLITUS
     Dosage: 5 UG, 2/D, SUBCUTANEOUS, 10 UG, 2/D, SUBCUTANEOUS
     Route: 058
     Dates: start: 20070301, end: 20070419
  2. BYETTA [Suspect]
     Indication: TYPE 2 DIABETES MELLITUS
     Dosage: 5 UG, 2/D, SUBCUTANEOUS, 10 UG, 2/D, SUBCUTANEOUS
     Route: 058
     Dates: start: 20070420, end: 20070420
  3. BYETTA [Suspect]
     Indication: TYPE 2 DIABETES MELLITUS
     Dosage: 5 UG, 2/D, SUBCUTANEOUS, 10 UG, 2/D, SUBCUTANEOUS
     Route: 058
     Dates: start: 20070420
  4. BYETTA             (EXANATIDE) [Suspect]
  5. EXENATIDE 5MCG PEN, [Concomitant]
  6. EXENATIDE 10MCG PEN, [Concomitant]
  7. GLUCOPHAGE XR                       (METFORMIN HYDROCHLORIDE) [Concomitant]

REACTIONS (3)
  - DECREASED APPETITE [None]
  - INJECTION SITE URTICARIA [None]
  - JOINT SWELLING [None]
